FAERS Safety Report 9810643 (Version 2)
Quarter: 2015Q3

REPORT INFORMATION
  Report Type: Spontaneous
  Country: US (occurrence: US)
  Receive Date: 20140110
  Receipt Date: 20150716
  Transmission Date: 20151125
  Serious: Yes (Hospitalization, Other)
  Sender: FDA-Public Use
  Company Number: US-SANOFI-AVENTIS-2013SA082583

PATIENT
  Age: 53 Year

DRUGS (1)
  1. PLAVIX [Suspect]
     Active Substance: CLOPIDOGREL BISULFATE
     Indication: THROMBOSIS
     Route: 065
     Dates: start: 200104, end: 200309

REACTIONS (6)
  - Ulcer haemorrhage [Unknown]
  - Cerebrovascular accident [Unknown]
  - Cerebral haemorrhage [Recovered/Resolved]
  - Gastrointestinal haemorrhage [Recovered/Resolved]
  - Transient ischaemic attack [Unknown]
  - Walking aid user [Unknown]

NARRATIVE: CASE EVENT DATE: 200107
